FAERS Safety Report 7873627-2 (Version None)
Quarter: 2011Q4

REPORT INFORMATION
  Report Type: 
  Country: None (occurrence: None)
  Receive Date: 20111030
  Receipt Date: 20110506
  Transmission Date: 20120403
  Serious: No
  Sender: FDA-Public Use
  Company Number: US-AMGEN-USASP2011024038

PATIENT
  Age: 27 Year
  Sex: Female

DRUGS (10)
  1. EMSAM [Concomitant]
     Dosage: 6 MG, QD
  2. CLIMARA PRO [Concomitant]
  3. SYNTHROID [Concomitant]
     Dosage: 100 A?G, UNK
  4. INDOMETHACIN [Concomitant]
     Dosage: 25 MG, UNK
  5. KLONOPIN [Concomitant]
     Dosage: 0.5 MG, UNK
  6. VITAMIN B12                        /00056201/ [Concomitant]
     Dosage: 50 A?G, UNK
  7. VITAMIN D [Concomitant]
     Dosage: 1000 UNIT, UNK
  8. MAGNESIUM [Concomitant]
     Dosage: 300 MG, UNK
  9. ENBREL [Suspect]
     Indication: PRODUCT USED FOR UNKNOWN INDICATION
     Dosage: 50 MG, QWK
     Route: 058
  10. SPIRONOLACTONE [Concomitant]
     Dosage: 25 MG, UNK

REACTIONS (7)
  - DYSGEUSIA [None]
  - INJECTION SITE REACTION [None]
  - INJECTION SITE INDURATION [None]
  - RHINORRHOEA [None]
  - INJECTION SITE URTICARIA [None]
  - INJECTION SITE ERYTHEMA [None]
  - INJECTION SITE SWELLING [None]
